FAERS Safety Report 9120379 (Version 1)
Quarter: 2013Q1

REPORT INFORMATION
  Report Type: Spontaneous
  Country: US (occurrence: US)
  Receive Date: 20130226
  Receipt Date: 20130226
  Transmission Date: 20140127
  Serious: Yes (Other)
  Sender: FDA-Public Use
  Company Number: CHPA2009US19780

PATIENT
  Age: 85 Year
  Sex: Female

DRUGS (5)
  1. MAALOX TOTAL RELIEF [Suspect]
     Dosage: UNK, UNK
     Route: 048
  2. LOPRESSOR [Suspect]
     Dosage: UNK, UNK
  3. IMODIUM ^JANSSEN^ [Suspect]
     Dosage: UNK, UNK
  4. BABY ASPIRIN [Suspect]
     Dosage: UNK, UNK
  5. CARAFATE [Suspect]
     Dosage: UNK, UNK

REACTIONS (4)
  - Haematochezia [Not Recovered/Not Resolved]
  - Flatulence [Not Recovered/Not Resolved]
  - Abdominal pain upper [Not Recovered/Not Resolved]
  - Constipation [Not Recovered/Not Resolved]
